FAERS Safety Report 6043776-2 (Version None)
Quarter: 2009Q1

REPORT INFORMATION
  Report Type: 
  Country: None (occurrence: None)
  Receive Date: 20090120
  Receipt Date: 20090114
  Transmission Date: 20090719
  Serious: Yes (Other)
  Sender: FDA-Public Use
  Company Number: PHHY2009BR01279

PATIENT
  Sex: Female
  Weight: 70 kg

DRUGS (3)
  1. GALVUS MET COMBIPACK [Suspect]
     Dosage: 850/50 MG, BEFORE THE LUNCH
     Dates: start: 20090101
  2. INSULIN [Concomitant]
     Dosage: 30 UI BEFORE THE LUNCH
  3. INSULIN [Concomitant]
     Dosage: 20 UI OF INSULIN ABOUT MID DAY

REACTIONS (1)
  - HYPERGLYCAEMIA [None]
